FAERS Safety Report 7377312-5 (Version None)
Quarter: 2011Q1

REPORT INFORMATION
  Report Type: 
  Country: None (occurrence: None)
  Receive Date: 20110328
  Receipt Date: 20110316
  Transmission Date: 20110831
  Serious: Yes (Hospitalization)
  Sender: FDA-Public Use
  Company Number: JP-JNJFOC-20110310224

PATIENT
  Sex: Male

DRUGS (6)
  1. CRAVIT [Suspect]
     Indication: PNEUMONIA
     Route: 041
  2. CRAVIT [Suspect]
     Route: 048
  3. PARIET [Concomitant]
     Indication: REFLUX OESOPHAGITIS
     Route: 048
  4. DALACIN S [Suspect]
     Indication: PNEUMONIA
     Route: 041
  5. AMARYL [Concomitant]
     Indication: DIABETES MELLITUS
     Route: 048
  6. CEREKINON [Concomitant]
     Indication: IRRITABLE BOWEL SYNDROME
     Route: 048

REACTIONS (1)
  - LACUNAR INFARCTION [None]
